FAERS Safety Report 8957276 (Version 4)
Quarter: 2018Q1

REPORT INFORMATION
  Report Type: Report from Study
  Country: US (occurrence: US)
  Receive Date: 20121210
  Receipt Date: 20180218
  Transmission Date: 20180509
  Serious: Yes (Death, Other)
  Sender: FDA-Public Use
  Company Number: US-ROCHE-1162365

PATIENT

DRUGS (3)
  1. BENDAMUSTINE [Suspect]
     Active Substance: BENDAMUSTINE
     Indication: NON-HODGKIN^S LYMPHOMA
     Dosage: ON DAYS 1 AND 2
     Route: 042
  2. BORTEZOMIB [Suspect]
     Active Substance: BORTEZOMIB
     Indication: NON-HODGKIN^S LYMPHOMA
     Dosage: ON DAYS 1, 8, AND 15
     Route: 042
  3. RITUXIMAB. [Suspect]
     Active Substance: RITUXIMAB
     Indication: NON-HODGKIN^S LYMPHOMA
     Dosage: ON DAYS 1, 8, AND 15 OF CYCLE 1
     Route: 042

REACTIONS (51)
  - Soft tissue infection [Unknown]
  - Nausea [Unknown]
  - Insomnia [Unknown]
  - Headache [Unknown]
  - Oropharyngeal pain [Unknown]
  - Skin infection [Unknown]
  - Wound complication [Unknown]
  - Neutropenia [Unknown]
  - Hepatitis [Unknown]
  - Oedema [Unknown]
  - Dyspnoea [Unknown]
  - Pyrexia [Unknown]
  - Asthenia [Unknown]
  - Febrile neutropenia [Unknown]
  - Diarrhoea [Unknown]
  - Constipation [Unknown]
  - Pancreatitis [Unknown]
  - Colonic abscess [Unknown]
  - Pelvic infection [Unknown]
  - Decreased appetite [Unknown]
  - Pain in extremity [Unknown]
  - Dry mouth [Unknown]
  - Pelvic pain [Unknown]
  - Thrombocytopenia [Unknown]
  - Anaemia [Unknown]
  - Lymphopenia [Unknown]
  - Staphylococcal infection [Unknown]
  - Vomiting [Unknown]
  - Dehydration [Unknown]
  - Pruritus [Unknown]
  - Cerebrovascular accident [Fatal]
  - Syncope [Unknown]
  - Hyperglycaemia [Unknown]
  - Aspartate aminotransferase increased [Unknown]
  - Hypersensitivity [Unknown]
  - Escherichia infection [Unknown]
  - Pneumonia [Unknown]
  - Rhinitis allergic [Unknown]
  - Bone pain [Unknown]
  - Fatigue [Unknown]
  - Rash [Unknown]
  - Cough [Unknown]
  - Herpes zoster [Unknown]
  - Hyponatraemia [Unknown]
  - Weight decreased [Unknown]
  - Hypocalcaemia [Unknown]
  - Neuropathy peripheral [Unknown]
  - Leukopenia [Unknown]
  - Alanine aminotransferase increased [Unknown]
  - Abdominal pain [Unknown]
  - Hypertension [Unknown]
